FAERS Safety Report 11679262 (Version 2)
Quarter: 2015Q4

REPORT INFORMATION
  Report Type: Spontaneous
  Country: US (occurrence: US)
  Receive Date: 20151027
  Receipt Date: 20151104
  Transmission Date: 20160304
  Serious: No
  Sender: FDA-Public Use
  Company Number: US-ELI_LILLY_AND_COMPANY-US201011003430

PATIENT
  Sex: Female

DRUGS (1)
  1. FORTEO [Suspect]
     Active Substance: TERIPARATIDE
     Indication: OSTEOPOROSIS
     Dosage: 20 UG, DAILY (1/D)
     Dates: start: 201010

REACTIONS (18)
  - Eating disorder [Unknown]
  - Fatigue [Unknown]
  - Tremor [Unknown]
  - Decreased appetite [Unknown]
  - Chills [Unknown]
  - Injection site haemorrhage [Unknown]
  - Depression [Unknown]
  - Irritability [Unknown]
  - Walking aid user [Unknown]
  - Depressed mood [Unknown]
  - Nervousness [Recovered/Resolved]
  - Injury associated with device [Unknown]
  - Haemorrhage [Unknown]
  - Arthralgia [Unknown]
  - Feeling abnormal [Unknown]
  - Sleep disorder [Unknown]
  - Asthenia [Unknown]
  - Nausea [Unknown]
